FAERS Safety Report 5601799-9 (Version None)
Quarter: 2008Q1

REPORT INFORMATION
  Report Type: 
  Country: None (occurrence: None)
  Receive Date: 20080111
  Receipt Date: 20070720
  Transmission Date: 20080703
  Serious: Yes (Other)
  Sender: FDA-Public Use
  Company Number: HQWYE740603AUG04

PATIENT
  Age: 55 Year
  Sex: Female
  Weight: 86.26 kg

DRUGS (2)
  1. PREMPRO [Suspect]
  2. PREMARIN [Suspect]

REACTIONS (7)
  - ALOPECIA [None]
  - AMNESIA [None]
  - BREAST CANCER [None]
  - CONFUSIONAL STATE [None]
  - DEPRESSION [None]
  - DYSARTHRIA [None]
  - RASH [None]
